FAERS Safety Report 5659843-9 (Version None)
Quarter: 2008Q1

REPORT INFORMATION
  Report Type: 
  Country: None (occurrence: None)
  Receive Date: 20080311
  Receipt Date: 20070730
  Transmission Date: 20080703
  Serious: No
  Sender: FDA-Public Use
  Company Number: US-BAYER-200712435BCC

PATIENT
  Age: 85 Year
  Sex: Female
  Weight: 45 kg

DRUGS (7)
  1. ALEVE [Suspect]
     Indication: TENDON PAIN
     Dosage: TOTAL DAILY DOSE: 880 MG  UNIT DOSE: 220 MG
     Route: 048
  2. MAXZIDE [Concomitant]
  3. LEVOTHYROXINE SODIUM [Concomitant]
  4. FOSAMAX [Concomitant]
  5. VITAMIN E [Concomitant]
  6. ONE A DAY WOMEN'S OVER 50 [Concomitant]
  7. HYDROCHLOROTHIAZIDE [Concomitant]

REACTIONS (1)
  - BLOOD PRESSURE INCREASED [None]
